FAERS Safety Report 15958188 (Version 4)
Quarter: 2019Q2

REPORT INFORMATION
  Report Type: Report from Study
  Country: US (occurrence: US)
  Receive Date: 20190213
  Receipt Date: 20190611
  Transmission Date: 20190711
  Serious: Yes (Hospitalization, Other)
  Sender: FDA-Public Use
  Company Number: PHEH2019US006423

PATIENT
  Sex: Male
  Weight: 111.11 kg

DRUGS (9)
  1. GILENYA [Suspect]
     Active Substance: FINGOLIMOD HYDROCHLORIDE
     Indication: MULTIPLE SCLEROSIS
     Dosage: 0.5 MG, QD
     Route: 048
     Dates: start: 20180911
  2. LISINOPRIL. [Concomitant]
     Active Substance: LISINOPRIL
     Indication: PRODUCT USED FOR UNKNOWN INDICATION
     Dosage: 20 MG, UNK
     Route: 065
  3. DULOXETINE. [Concomitant]
     Active Substance: DULOXETINE
     Indication: PRODUCT USED FOR UNKNOWN INDICATION
     Dosage: 30 MG, BID
     Route: 048
  4. AMLODIPINE [Concomitant]
     Active Substance: AMLODIPINE BESYLATE
     Indication: PRODUCT USED FOR UNKNOWN INDICATION
     Dosage: 10 MG, QD
     Route: 048
  5. LOSARTAN. [Concomitant]
     Active Substance: LOSARTAN
     Indication: PRODUCT USED FOR UNKNOWN INDICATION
     Dosage: 50 MG, UNK
     Route: 065
  6. HCTZ [Concomitant]
     Active Substance: HYDROCHLOROTHIAZIDE
     Indication: PRODUCT USED FOR UNKNOWN INDICATION
     Dosage: 25 MG, QD
     Route: 048
  7. LORAZEPAM. [Concomitant]
     Active Substance: LORAZEPAM
     Indication: PRODUCT USED FOR UNKNOWN INDICATION
     Dosage: 0.5 MG, Q8H
     Route: 048
  8. TIZANIDINE. [Concomitant]
     Active Substance: TIZANIDINE
     Indication: PRODUCT USED FOR UNKNOWN INDICATION
     Dosage: 4 MG, QHS
     Route: 048
  9. FLUTICASONE. [Concomitant]
     Active Substance: FLUTICASONE
     Indication: PRODUCT USED FOR UNKNOWN INDICATION
     Dosage: 50 UG, UNK
     Route: 065

REACTIONS (22)
  - Eye pain [Unknown]
  - Chest discomfort [Unknown]
  - Sinusitis [Unknown]
  - Hypoaesthesia [Recovering/Resolving]
  - Amnesia [Recovering/Resolving]
  - Optic neuritis [Unknown]
  - Vitreous floaters [Unknown]
  - Photophobia [Unknown]
  - Rhinitis [Unknown]
  - Multiple sclerosis relapse [Recovering/Resolving]
  - Photopsia [Unknown]
  - Retinal disorder [Recovering/Resolving]
  - Ataxia [Recovering/Resolving]
  - Spinal pain [Unknown]
  - Dysarthria [Recovering/Resolving]
  - Retinal tear [Unknown]
  - Blindness unilateral [Unknown]
  - Vision blurred [Unknown]
  - Headache [Unknown]
  - Lacrimation increased [Unknown]
  - Nausea [Unknown]
  - Musculoskeletal pain [Unknown]
